FAERS Safety Report 10056559 (Version 1)
Quarter: 2014Q2

REPORT INFORMATION
  Report Type: Spontaneous
  Country: GB (occurrence: GB)
  Receive Date: 20140403
  Receipt Date: 20140403
  Transmission Date: 20141212
  Serious: Yes (Hospitalization)
  Sender: FDA-Public Use
  Company Number: GB-009507513-1404GBR000555

PATIENT
  Age: 93 Year
  Sex: Female
  Weight: 47.7 kg

DRUGS (10)
  1. ALENDRONATE SODIUM [Suspect]
     Route: 048
     Dates: start: 20131210
  2. ADCAL (CALCIUM CARBONATE) [Concomitant]
     Dates: start: 20131210
  3. SULFADIAZINE, SILVER [Concomitant]
     Dates: start: 20131127, end: 20140307
  4. DOXYCYCLINE [Concomitant]
     Dates: start: 20140306, end: 20140313
  5. FERROUS FUMARATE [Concomitant]
     Dates: start: 20131210
  6. FUCITHALMIC [Concomitant]
     Dates: start: 20131210, end: 20131225
  7. HALOPERIDOL [Concomitant]
     Dates: start: 20131210, end: 20140127
  8. LEVOTHYROXINE SODIUM [Concomitant]
     Dates: start: 20140226
  9. OMEPRAZOLE [Concomitant]
     Dates: start: 20140228
  10. ACETAMINOPHEN [Concomitant]
     Dates: start: 20140228, end: 20140307

REACTIONS (1)
  - Haematemesis [Recovering/Resolving]
